FAERS Safety Report 5958946-9 (Version None)
Quarter: 2008Q4

REPORT INFORMATION
  Report Type: 
  Country: None (occurrence: None)
  Receive Date: 20081119
  Receipt Date: 20081110
  Transmission Date: 20090506
  Serious: Yes (Hospitalization, Other)
  Sender: FDA-Public Use
  Company Number: US-ALLERGAN-0814326US

PATIENT
  Sex: Female

DRUGS (2)
  1. BOTOX [Suspect]
     Indication: DYSKINESIA
     Dosage: UNK, UNKNOWN
  2. BOTOX [Suspect]

REACTIONS (1)
  - DYSPHAGIA [None]
